FAERS Safety Report 4708234-3 (Version None)
Quarter: 2005Q3

REPORT INFORMATION
  Report Type: 
  Country: None (occurrence: None)
  Receive Date: 20050707
  Receipt Date: 20050628
  Transmission Date: 20060218
  Serious: Yes (Other)
  Sender: FDA-Public Use
  Company Number: US-JNJFOC-20050607426

PATIENT
  Sex: Female

DRUGS (7)
  1. MOTRIN [Suspect]
     Indication: CERVIX DISORDER
  2. MOTRIN [Suspect]
     Indication: ARTHRITIS
  3. GLUCOSAMINE/CHONDROITIN [Concomitant]
  4. GLUCOSAMINE/CHONDROITIN [Concomitant]
  5. GLUCOSAMINE/CHONDROITIN [Concomitant]
  6. GLUCOSAMINE/CHONDROITIN [Concomitant]
  7. ACETYLCARNITINE [Concomitant]

REACTIONS (3)
  - BACK PAIN [None]
  - INCORRECT DOSE ADMINISTERED [None]
  - VERTIGO [None]
